FAERS Safety Report 7068414-1 (Version None)
Quarter: 2010Q4

REPORT INFORMATION
  Report Type: 
  Country: None (occurrence: None)
  Receive Date: 20101028
  Receipt Date: 20101018
  Transmission Date: 20110411
  Serious: Yes (Hospitalization)
  Sender: FDA-Public Use
  Company Number: B0679648A

PATIENT
  Age: 78 Year
  Sex: Female

DRUGS (2)
  1. MODACIN [Suspect]
     Indication: PRODUCT USED FOR UNKNOWN INDICATION
     Dosage: 2G PER DAY
     Route: 042
     Dates: start: 20101012, end: 20101012
  2. VANCOMYCIN [Concomitant]
     Dosage: 2G PER DAY
     Dates: start: 20101012, end: 20101012

REACTIONS (5)
  - ANAPHYLACTIC SHOCK [None]
  - CYANOSIS [None]
  - DYSPNOEA [None]
  - LOSS OF CONSCIOUSNESS [None]
  - PRURITUS [None]
